FAERS Safety Report 22348613 (Version 2)
Quarter: 2023Q2

REPORT INFORMATION
  Report Type: Spontaneous
  Country: IN (occurrence: IN)
  Receive Date: 20230522
  Receipt Date: 20230526
  Transmission Date: 20230722
  Serious: Yes (Death, Hospitalization, Other)
  Sender: FDA-Public Use
  Company Number: IN-SUN PHARMACEUTICAL INDUSTRIES LTD-2023R1-388893

PATIENT
  Age: 28 Year
  Sex: Female

DRUGS (1)
  1. FERROUS SULFATE [Suspect]
     Active Substance: FERROUS SULFATE
     Indication: Product used for unknown indication
     Dosage: 60 MG OF ELEMENTAL IRON IN 200 MG OF FERROUS SULFATE
     Route: 065

REACTIONS (6)
  - Overdose [Fatal]
  - Suicide attempt [Fatal]
  - Hepatic failure [Fatal]
  - Poisoning [Fatal]
  - Toxicity to various agents [Fatal]
  - Hepatic necrosis [Fatal]
